FAERS Safety Report 5854055-8 (Version None)
Quarter: 2008Q3

REPORT INFORMATION
  Report Type: 
  Country: None (occurrence: None)
  Receive Date: 20080822
  Receipt Date: 20080821
  Transmission Date: 20090109
  Serious: Yes (Hospitalization)
  Sender: FDA-Public Use
  Company Number: PHHO2002IT04749

PATIENT
  Sex: Female
  Weight: 75 kg

DRUGS (4)
  1. DIOVAN T30230+CAPS [Suspect]
     Indication: SYSTOLIC HYPERTENSION
     Dosage: 160 MG, QD
     Dates: start: 20011128
  2. ESIDRIX [Suspect]
     Indication: SYSTOLIC HYPERTENSION
     Dosage: 12.5 MG, QD
     Route: 048
     Dates: start: 20020315, end: 20020430
  3. BI-EUGLUCON [Concomitant]
     Indication: DIABETES MELLITUS
     Dates: start: 19960101
  4. IBUSTRIN [Concomitant]
     Indication: CEREBROVASCULAR DISORDER
     Dates: start: 20010401

REACTIONS (2)
  - EXTRASYSTOLES [None]
  - SYNCOPE [None]
